FAERS Safety Report 10661867 (Version 1)
Quarter: 2014Q4

REPORT INFORMATION
  Report Type: Spontaneous
  Country: US (occurrence: None)
  Receive Date: 20141217
  Receipt Date: 20141217
  Transmission Date: 20150529
  Serious: No
  Sender: FDA-Public Use
  Company Number: None

PATIENT
  Age: 44 Year
  Sex: Male

DRUGS (1)
  1. VANCOMYCIN [Suspect]
     Active Substance: VANCOMYCIN
     Indication: INFECTION
     Route: 042
     Dates: start: 20141001, end: 20141001

REACTIONS (4)
  - Erythema [None]
  - Urticaria [None]
  - Paraesthesia [None]
  - Hypotension [None]

NARRATIVE: CASE EVENT DATE: 20141001
